FAERS Safety Report 13496133 (Version 1)
Quarter: 2017Q2

REPORT INFORMATION
  Report Type: Report from Study
  Country: None (occurrence: GB)
  Receive Date: 20170428
  Receipt Date: 20170428
  Transmission Date: 20170830
  Serious: Yes (Other)
  Sender: FDA-Public Use
  Company Number: GB-ABBVIE-17K-167-1953942-00

PATIENT
  Age: 76 Year
  Sex: Male

DRUGS (1)
  1. DUODOPA [Suspect]
     Active Substance: CARBIDOPA\LEVODOPA
     Indication: PARKINSON^S DISEASE
     Dosage: 100ML CASSETTE
     Route: 050

REACTIONS (6)
  - Spondylitis [Unknown]
  - Fall [Unknown]
  - Balance disorder [Unknown]
  - General physical health deterioration [Unknown]
  - Dyskinesia [Unknown]
  - Device leakage [Unknown]

NARRATIVE: CASE EVENT DATE: 201701
